FAERS Safety Report 13967540 (Version 1)
Quarter: 2017Q3

REPORT INFORMATION
  Report Type: Report from Study
  Country: FR (occurrence: FR)
  Receive Date: 20170914
  Receipt Date: 20170914
  Transmission Date: 20171128
  Serious: Yes (Death, Other)
  Sender: FDA-Public Use
  Company Number: FR-BRISTOL-MYERS SQUIBB COMPANY-BMS-2017-045195

PATIENT
  Age: 86 Year
  Sex: Male

DRUGS (1)
  1. NIVOLUMAB [Suspect]
     Active Substance: NIVOLUMAB
     Indication: LUNG NEOPLASM MALIGNANT
     Dosage: 243 MG, UNK
     Route: 042
     Dates: start: 20170227, end: 20170410

REACTIONS (5)
  - General physical health deterioration [Fatal]
  - Cholestasis [Unknown]
  - Malignant neoplasm progression [Fatal]
  - Metastases to liver [Unknown]
  - Cell death [Unknown]

NARRATIVE: CASE EVENT DATE: 20170424
